FAERS Safety Report 19172236 (Version 1)
Quarter: 2021Q2

REPORT INFORMATION
  Report Type: Spontaneous
  Country: US (occurrence: US)
  Receive Date: 20210423
  Receipt Date: 20210423
  Transmission Date: 20210717
  Serious: No
  Sender: FDA-Public Use
  Company Number: US-TEVA-2021-US-1901840

PATIENT
  Sex: Female

DRUGS (1)
  1. ZOLPIDEM TARTRATE TEVA [Suspect]
     Active Substance: ZOLPIDEM TARTRATE
     Indication: INSOMNIA
     Dosage: TAKING OVER 10 YEARS
     Route: 065

REACTIONS (3)
  - Product quality issue [Unknown]
  - Drug intolerance [Unknown]
  - Somnolence [Unknown]
